FAERS Safety Report 20663370 (Version 2)
Quarter: 2022Q2

REPORT INFORMATION
  Report Type: Spontaneous
  Country: JP (occurrence: JP)
  Receive Date: 20220401
  Receipt Date: 20220425
  Transmission Date: 20220720
  Serious: No
  Sender: FDA-Public Use
  Company Number: JP-GSKNCCC-Case-01456413_AE-56419

PATIENT
  Age: 50 Year
  Sex: Female

DRUGS (6)
  1. SOTROVIMAB [Suspect]
     Active Substance: SOTROVIMAB
     Indication: COVID-19
     Dosage: 500 MG
     Dates: start: 20220309, end: 20220309
  2. SPIRONOLACTONE [Concomitant]
     Active Substance: SPIRONOLACTONE
     Indication: Ascites
     Dosage: 25 MG, BID, IN MORNING AND AFTERNOON
     Dates: start: 20220217
  3. FUROSEMIDE [Concomitant]
     Active Substance: FUROSEMIDE
     Indication: Ascites
     Dosage: 20 MG, BID, IN MORNING AND AFTERNOON
     Dates: start: 20220217
  4. MIYA-BM FINE GRANULES [Concomitant]
     Indication: Constipation
     Dosage: UNK, QD
  5. LOXOPROFEN SODIUM DIHYDRATE [Concomitant]
     Active Substance: LOXOPROFEN SODIUM DIHYDRATE
     Indication: Pain
     Dosage: 60 MG, BID, IN MORNING AND EVENING
  6. REBAMIPIDE TABLETS [Concomitant]
     Indication: Gastrointestinal disorder prophylaxis
     Dosage: 100 MG, BID, IN MORNING AND EVENING

REACTIONS (1)
  - Urticaria [Recovered/Resolved]

NARRATIVE: CASE EVENT DATE: 20220311
